FAERS Safety Report 25727168 (Version 1)
Quarter: 2025Q3

REPORT INFORMATION
  Report Type: Spontaneous
  Country: US (occurrence: None)
  Receive Date: 20250825
  Receipt Date: 20250825
  Transmission Date: 20251021
  Serious: Yes (Hospitalization)
  Sender: FDA-CTU
  Company Number: None

PATIENT
  Age: 78 Year
  Sex: Male
  Weight: 91.63 kg

DRUGS (16)
  1. POMALYST [Suspect]
     Active Substance: POMALIDOMIDE
     Indication: Plasma cell myeloma in remission
     Route: 048
     Dates: start: 20240417
  2. IMODIUM [Concomitant]
     Active Substance: LOPERAMIDE HYDROCHLORIDE
  3. DIGOXIN [Concomitant]
     Active Substance: DIGOXIN
  4. WARFARIN [Concomitant]
     Active Substance: WARFARIN
  5. MEOPROLOL ER SUCCINATE [Concomitant]
  6. RAMIPRIL [Concomitant]
     Active Substance: RAMIPRIL
  7. ATORVASTATIN [Concomitant]
     Active Substance: ATORVASTATIN
  8. FUROSEMIDE [Concomitant]
     Active Substance: FUROSEMIDE
  9. VALACYCLOVIR [Concomitant]
     Active Substance: VALACYCLOVIR HYDROCHLORIDE
  10. VITAMIN D3 [Concomitant]
     Active Substance: CHOLECALCIFEROL
  11. METFORMIN HYDROCHLORIDE [Concomitant]
     Active Substance: METFORMIN HYDROCHLORIDE
  12. PRIMIDONE [Concomitant]
     Active Substance: PRIMIDONE
  13. MAGNESIUM [Concomitant]
     Active Substance: MAGNESIUM
  14. SPIRONOLACTONE [Concomitant]
     Active Substance: SPIRONOLACTONE
  15. AMLODIPINE BESYLATE [Concomitant]
     Active Substance: AMLODIPINE BESYLATE
  16. JARDIANCE [Concomitant]
     Active Substance: EMPAGLIFLOZIN

REACTIONS (2)
  - Fall [None]
  - Therapy interrupted [None]

NARRATIVE: CASE EVENT DATE: 20250813
